FAERS Safety Report 9891456 (Version 4)
Quarter: 2014Q2

REPORT INFORMATION
  Report Type: Report from Study
  Country: CA (occurrence: CA)
  Receive Date: 20140212
  Receipt Date: 20140530
  Transmission Date: 20141212
  Serious: Yes (Other)
  Sender: FDA-Public Use
  Company Number: CA-JNJFOC-20140202756

PATIENT
  Age: 35 Year
  Sex: Female
  Weight: 85 kg

DRUGS (2)
  1. REMICADE [Suspect]
     Indication: CROHN^S DISEASE
     Route: 042
     Dates: start: 20130906
  2. REMICADE [Suspect]
     Indication: CROHN^S DISEASE
     Route: 042
     Dates: start: 20140204

REACTIONS (5)
  - Eye pain [Unknown]
  - Eye swelling [Unknown]
  - Erythema [Unknown]
  - Pruritus generalised [Unknown]
  - Infusion related reaction [Unknown]
